FAERS Safety Report 12055999 (Version 2)
Quarter: 2016Q1

REPORT INFORMATION
  Report Type: Report from Study
  Country: CN (occurrence: CN)
  Receive Date: 20160209
  Receipt Date: 20160217
  Transmission Date: 20160526
  Serious: Yes (Hospitalization, Other)
  Sender: FDA-Public Use
  Company Number: CN-BRISTOL-MYERS SQUIBB COMPANY-BMS-2016-008206

PATIENT
  Age: 36 Year
  Sex: Female
  Weight: 60 kg

DRUGS (1)
  1. ENTECAVIR. [Suspect]
     Active Substance: ENTECAVIR
     Indication: CHRONIC HEPATITIS B
     Dosage: 0.5 MG, QD
     Route: 048
     Dates: start: 20130924

REACTIONS (7)
  - Pelvic inflammatory disease [Recovered/Resolved]
  - Ovarian adenoma [Recovered/Resolved]
  - Salpingectomy [Unknown]
  - Maternal exposure during pregnancy [Recovered/Resolved]
  - Ectopic pregnancy [Recovered/Resolved]
  - Ovarian cystectomy [Unknown]
  - Adhesiolysis [Unknown]

NARRATIVE: CASE EVENT DATE: 20151008
